FAERS Safety Report 6807276-1 (Version None)
Quarter: 2010Q2

REPORT INFORMATION
  Report Type: 
  Country: None (occurrence: None)
  Receive Date: 20100629
  Receipt Date: 20080815
  Transmission Date: 20101027
  Serious: Yes (Other)
  Sender: FDA-Public Use
  Company Number: US-PFIZER INC-2008069054

PATIENT
  Sex: Female
  Weight: 81.1 kg

DRUGS (7)
  1. TIKOSYN [Suspect]
     Indication: VENTRICULAR TACHYCARDIA
     Dates: start: 20080811, end: 20080812
  2. LANTUS [Concomitant]
     Indication: DIABETES MELLITUS
  3. GLUCOVANCE [Concomitant]
     Indication: DIABETES MELLITUS
  4. DILTIAZEM [Concomitant]
  5. LASIX [Concomitant]
  6. ALLOPURINOL [Concomitant]
  7. PROTONIX [Concomitant]

REACTIONS (2)
  - ELECTROCARDIOGRAM QT PROLONGED [None]
  - TORSADE DE POINTES [None]
